FAERS Safety Report 7068604-8 (Version None)
Quarter: 2010Q4

REPORT INFORMATION
  Report Type: 
  Country: None (occurrence: None)
  Receive Date: 20101028
  Receipt Date: 20101019
  Transmission Date: 20110411
  Serious: Yes (Other)
  Sender: FDA-Public Use
  Company Number: JP-ABBOTT-10P-087-0676359-00

PATIENT
  Sex: Female
  Weight: 55 kg

DRUGS (7)
  1. CLARITHROMYCIN [Suspect]
     Indication: MYCOBACTERIUM AVIUM COMPLEX INFECTION
     Dates: start: 20050501
  2. CLARITHROMYCIN [Interacting]
     Dates: start: 20081001
  3. CLARITHROMYCIN [Interacting]
     Dates: start: 20081001
  4. RIFABUTIN [Interacting]
     Indication: MYCOBACTERIUM KANSASII PNEUMONIA
     Dates: start: 20081001, end: 20090101
  5. RIFABUTIN [Interacting]
     Dates: start: 20081001
  6. ISONIAZID [Concomitant]
     Indication: MYCOBACTERIUM AVIUM COMPLEX INFECTION
     Dates: start: 20050501
  7. RIFAMPICIN [Concomitant]
     Indication: MYCOBACTERIUM AVIUM COMPLEX INFECTION
     Dates: start: 20050501

REACTIONS (2)
  - DRUG INTERACTION [None]
  - UVEITIS [None]
